FAERS Safety Report 24535275 (Version 2)
Quarter: 2024Q4

REPORT INFORMATION
  Report Type: Spontaneous
  Country: DE (occurrence: DE)
  Receive Date: 20241022
  Receipt Date: 20241225
  Transmission Date: 20250115
  Serious: Yes (Other)
  Sender: TEVA
  Company Number: DE-TEVA-VS-3255958

PATIENT
  Age: 11 Year
  Sex: Male

DRUGS (1)
  1. LISDEXAMFETAMINE [Suspect]
     Active Substance: LISDEXAMFETAMINE
     Indication: Attention deficit hyperactivity disorder
     Dosage: RATIOPHARM 20MG
     Route: 065
     Dates: start: 20240911

REACTIONS (5)
  - Psychotic disorder [Recovering/Resolving]
  - Feeling abnormal [Unknown]
  - Panic disorder [Recovering/Resolving]
  - Suicidal ideation [Unknown]
  - Hallucination [Unknown]

NARRATIVE: CASE EVENT DATE: 20240101
